FAERS Safety Report 9348596 (Version 1)
Quarter: 2013Q2

REPORT INFORMATION
  Report Type: Spontaneous
  Country: US (occurrence: None)
  Receive Date: 20130613
  Receipt Date: 20130613
  Transmission Date: 20140414
  Serious: Yes (Hospitalization)
  Sender: FDA-Public Use
  Company Number: None

PATIENT
  Sex: Male

DRUGS (1)
  1. STIVARGA 40MG BAYER [Suspect]
     Route: 048
     Dates: start: 201211, end: 201305

REACTIONS (1)
  - Gastrointestinal haemorrhage [None]
